FAERS Safety Report 8227939-3 (Version None)
Quarter: 2012Q1

REPORT INFORMATION
  Report Type: 
  Country: None (occurrence: None)
  Receive Date: 20120322
  Receipt Date: 20120315
  Transmission Date: 20120608
  Serious: Yes (Other)
  Sender: FDA-Public Use
  Company Number: US-BAYER-2012-026585

PATIENT

DRUGS (2)
  1. DOMEBORO [Suspect]
     Indication: SKIN ULCER
  2. DOMEBORO [Suspect]
     Indication: SKIN EXFOLIATION
     Route: 061

REACTIONS (2)
  - SKIN ULCER [None]
  - DRY SKIN [None]
